FAERS Safety Report 10186044 (Version 1)
Quarter: 2014Q2

REPORT INFORMATION
  Report Type: Spontaneous
  Country: US (occurrence: None)
  Receive Date: 20140520
  Receipt Date: 20140520
  Transmission Date: 20141212
  Serious: Yes (Other)
  Sender: FDA-Public Use
  Company Number: None

PATIENT
  Age: 48 Year
  Sex: Female

DRUGS (1)
  1. STELARA [Suspect]
     Indication: PSORIASIS
     Dosage: 45MG/0.5ML, EVEYR 12 WEEKS, SUB-Q INJ?
     Route: 058
     Dates: start: 201105

REACTIONS (5)
  - Inappropriate schedule of drug administration [None]
  - Rhinitis [None]
  - Eye disorder [None]
  - Feeling abnormal [None]
  - Swelling [None]
